FAERS Safety Report 8392209-X (Version None)
Quarter: 2012Q2

REPORT INFORMATION
  Report Type: 
  Country: None (occurrence: None)
  Receive Date: 20120529
  Receipt Date: 20120516
  Transmission Date: 20120825
  Serious: Yes (Other)
  Sender: FDA-Public Use
  Company Number: OM-JNJFOC-20120515663

PATIENT
  Age: 52 Year
  Sex: Female

DRUGS (4)
  1. DOXORUBICIN HCL [Suspect]
     Indication: OVARIAN GRANULOSA-THECA CELL TUMOUR
     Route: 042
  2. DOXORUBICIN HCL [Suspect]
     Route: 042
  3. CARBOPLATIN [Suspect]
     Indication: OVARIAN GRANULOSA-THECA CELL TUMOUR
     Route: 065
  4. CARBOPLATIN [Suspect]
     Route: 065

REACTIONS (7)
  - ASTHENIA [None]
  - DRUG TOLERANCE DECREASED [None]
  - VOMITING [None]
  - BONE MARROW FAILURE [None]
  - RENAL IMPAIRMENT [None]
  - DIARRHOEA [None]
  - NEOPLASM PROGRESSION [None]
